FAERS Safety Report 10039383 (Version 2)
Quarter: 2014Q2

REPORT INFORMATION
  Report Type: Report from Study
  Country: MX (occurrence: MX)
  Receive Date: 20140326
  Receipt Date: 20140408
  Transmission Date: 20141212
  Serious: Yes (Other)
  Sender: FDA-Public Use
  Company Number: PHHY2014MX036158

PATIENT
  Age: 71 Year
  Sex: Female

DRUGS (4)
  1. DIOVAN [Suspect]
     Indication: HYPERTENSION
     Dosage: 1 DF, QD
     Route: 048
     Dates: end: 201401
  2. FLAGYL [Concomitant]
     Dosage: 1 DF, EVERY 8 HRS
     Dates: start: 201401
  3. EVIPRESS [Concomitant]
     Dosage: 0.5 DF, AT NIGHT
     Dates: start: 201401
  4. CEFTRIAXONE [Concomitant]
     Dosage: 1 DF, QD

REACTIONS (12)
  - Dysentery [Recovered/Resolved]
  - Abdominal pain upper [Recovered/Resolved]
  - Pyrexia [Recovered/Resolved]
  - Diarrhoea [Recovered/Resolved]
  - Hypertension [Recovered/Resolved]
  - Tachycardia [Not Recovered/Not Resolved]
  - Gait disturbance [Recovered/Resolved]
  - Hypothyroidism [Not Recovered/Not Resolved]
  - Feeling abnormal [Not Recovered/Not Resolved]
  - Culture throat positive [Unknown]
  - Oedema peripheral [Recovered/Resolved]
  - Drug ineffective [Recovered/Resolved]
